FAERS Safety Report 6150412-3 (Version None)
Quarter: 2009Q2

REPORT INFORMATION
  Report Type: 
  Country: None (occurrence: None)
  Receive Date: 20090409
  Receipt Date: 20090403
  Transmission Date: 20091009
  Serious: Yes (Hospitalization)
  Sender: FDA-Public Use
  Company Number: FR-BRISTOL-MYERS SQUIBB COMPANY-14538516

PATIENT
  Age: 59 Year
  Sex: Male

DRUGS (4)
  1. CISPLATIN [Suspect]
     Indication: HEAD AND NECK CANCER
     Dosage: RECENT INFUSION: 24FEB09(4 TH INFUSION).
     Route: 042
     Dates: start: 20081208
  2. CETUXIMAB [Suspect]
     Indication: HEAD AND NECK CANCER
     Dosage: 5MG/ML. MOST RECENT INFUSION: 23FEB09 TEMPORARILY DISCONTINUED: 02MAR09 REINTRODUCED ON 16MAR09.
     Route: 042
     Dates: start: 20081208
  3. CILENGITIDE [Suspect]
     Indication: HEAD AND NECK CANCER
     Dosage: RECENT INFUSION: 26FEB09(20 TH INFUSION);REINTRODUCED ON 12MAR09.
     Route: 042
     Dates: start: 20081208
  4. FLUOROURACIL [Suspect]
     Indication: HEAD AND NECK CANCER
     Dosage: MOST RECENT INFUSION: 23-FEB-2009;CONTINUOUS INF FROM DAY 1 TO 4.
     Route: 042
     Dates: start: 20081208

REACTIONS (1)
  - MUCOSAL INFLAMMATION [None]
